FAERS Safety Report 13553532 (Version 2)
Quarter: 2017Q2

REPORT INFORMATION
  Report Type: Spontaneous
  Country: AR (occurrence: AR)
  Receive Date: 20170517
  Receipt Date: 20170531
  Transmission Date: 20170830
  Serious: Yes (Other)
  Sender: FDA-Public Use
  Company Number: PHHY2017AR069902

PATIENT
  Sex: Female

DRUGS (2)
  1. DIOVAN [Suspect]
     Active Substance: VALSARTAN
     Indication: HYPERTENSION
     Dosage: 160 OT, QD
     Route: 065
  2. GALVUS MET [Suspect]
     Active Substance: METFORMIN HYDROCHLORIDE\VILDAGLIPTIN
     Indication: DIABETES MELLITUS
     Dosage: 850/50, QD
     Route: 065
     Dates: start: 201612

REACTIONS (6)
  - Influenza [Recovered/Resolved]
  - Nasal congestion [Recovered/Resolved]
  - Oropharyngeal pain [Recovered/Resolved]
  - Pain [Recovered/Resolved]
  - Viral upper respiratory tract infection [Recovered/Resolved]
  - Diabetes mellitus [Recovered/Resolved]
